FAERS Safety Report 9607027 (Version 2)
Quarter: 2013Q4

REPORT INFORMATION
  Report Type: Spontaneous
  Country: JP (occurrence: JP)
  Receive Date: 20131009
  Receipt Date: 20131009
  Transmission Date: 20140711
  Serious: Yes (Hospitalization)
  Sender: FDA-Public Use
  Company Number: JP-PFIZER INC-2013104524

PATIENT
  Age: 45 Year
  Sex: Male

DRUGS (10)
  1. CORTRIL [Suspect]
     Dosage: 30 MG, UNK
     Route: 048
     Dates: start: 20130204
  2. SHAKUYAKU-KANZO-TO [Suspect]
     Dosage: 2.5 G, 3X/DAY
     Route: 048
     Dates: start: 20130316, end: 20130322
  3. LASIX [Suspect]
     Dosage: 40 MG, 1X/DAY
     Route: 048
     Dates: start: 20130316, end: 20130322
  4. TAKEPRON [Concomitant]
     Dosage: 30 MG, 1X/DAY
     Route: 048
  5. BIO THREE [Concomitant]
     Dosage: 1 DF, 3X/DAY
     Route: 048
  6. ALLELOCK [Concomitant]
     Dosage: 5 MG, 2X/DAY
     Route: 048
  7. PROMAC D [Concomitant]
     Dosage: 75 MG, 2X/DAY
     Route: 048
  8. RHYTHMY [Concomitant]
     Dosage: 2 MG, 1X/DAY
     Route: 048
  9. ALESION [Concomitant]
     Dosage: 20 MG, 1X/DAY
     Route: 048
  10. PREDONINE [Concomitant]
     Dosage: 20 MG, 1X/DAY
     Route: 048
     Dates: start: 20130316, end: 20130322

REACTIONS (4)
  - Malaise [Unknown]
  - Nausea [Unknown]
  - Hypokalaemia [Recovered/Resolved]
  - Muscle spasms [Unknown]
